FAERS Safety Report 12407305 (Version 4)
Quarter: 2017Q1

REPORT INFORMATION
  Report Type: Spontaneous
  Country: US (occurrence: US)
  Receive Date: 20160526
  Receipt Date: 20170327
  Transmission Date: 20170428
  Serious: No
  Sender: FDA-Public Use
  Company Number: US-VELOXIS PHARMACEUTICALS-1052840

PATIENT
  Age: 55 Year
  Sex: Male

DRUGS (3)
  1. ENVARSUS XR [Suspect]
     Active Substance: TACROLIMUS
     Indication: PROPHYLAXIS AGAINST TRANSPLANT REJECTION
     Dates: end: 20160512
  2. TACROLIMUS. [Concomitant]
     Active Substance: TACROLIMUS
  3. TACROLIMUS. [Concomitant]
     Active Substance: TACROLIMUS
     Dates: start: 20160512

REACTIONS (1)
  - Immunosuppressant drug level decreased [Unknown]
